FAERS Safety Report 18120788 (Version 2)
Quarter: 2020Q3

REPORT INFORMATION
  Report Type: Report from Study
  Country: NL (occurrence: NL)
  Receive Date: 20200806
  Receipt Date: 20200821
  Transmission Date: 20201103
  Serious: No
  Sender: FDA-Public Use
  Company Number: NL-TOLMAR, INC.-20NL022242

PATIENT
  Age: 64 Year
  Sex: Male

DRUGS (2)
  1. ELIGARD [Suspect]
     Active Substance: LEUPROLIDE ACETATE
     Indication: PROSTATE CANCER METASTATIC
     Dosage: 45 MG, Q 6 MONTH
     Route: 058
     Dates: start: 20200124
  2. ELIGARD [Suspect]
     Active Substance: LEUPROLIDE ACETATE
     Indication: BONE CANCER METASTATIC
     Dosage: 45 MG, Q 6 MONTH
     Route: 058
     Dates: start: 20200724

REACTIONS (3)
  - Scrotal pain [Not Recovered/Not Resolved]
  - Hot flush [Not Recovered/Not Resolved]
  - Groin pain [Not Recovered/Not Resolved]

NARRATIVE: CASE EVENT DATE: 20200124
